FAERS Safety Report 5184141-X (Version None)
Quarter: 2006Q4

REPORT INFORMATION
  Report Type: 
  Country: None (occurrence: None)
  Receive Date: 20061220
  Receipt Date: 20060213
  Transmission Date: 20070319
  Serious: No
  Sender: FDA-Public Use
  Company Number: US-GLAXOSMITHKLINE-A0593412A

PATIENT
  Age: 37 Year
  Sex: Female

DRUGS (3)
  1. TARGET NTS 21MG [Suspect]
     Dates: start: 20060207, end: 20060208
  2. EQUATE NTS 21MG [Suspect]
  3. ONE-A-DAY VITAMINS [Concomitant]

REACTIONS (9)
  - APPLICATION SITE ERYTHEMA [None]
  - APPLICATION SITE SWELLING [None]
  - CRYING [None]
  - DEPRESSION [None]
  - DISTURBANCE IN ATTENTION [None]
  - MENTAL DISORDER [None]
  - NICOTINE DEPENDENCE [None]
  - PRURITUS GENERALISED [None]
  - URTICARIA [None]
